FAERS Safety Report 13349491 (Version 1)
Quarter: 2017Q1

REPORT INFORMATION
  Report Type: Spontaneous
  Country: US (occurrence: US)
  Receive Date: 20170320
  Receipt Date: 20170320
  Transmission Date: 20170428
  Serious: Yes (Disabling, Other)
  Sender: FDA-Public Use
  Company Number: US-AUROBINDO-AUR-APL-2014-00567

PATIENT

DRUGS (2)
  1. LEVETIRACETAM TABLETS 250 MG [Suspect]
     Active Substance: LEVETIRACETAM
     Indication: OFF LABEL USE
  2. LEVETIRACETAM TABLETS 250 MG [Suspect]
     Active Substance: LEVETIRACETAM
     Indication: CONCUSSION
     Dosage: UNK UNK,UNK,
     Route: 065
     Dates: start: 201303, end: 201304

REACTIONS (7)
  - Abasia [Not Recovered/Not Resolved]
  - Suicidal ideation [Not Recovered/Not Resolved]
  - Anger [Not Recovered/Not Resolved]
  - Off label use [Unknown]
  - Incoherent [Not Recovered/Not Resolved]
  - Wheelchair user [Not Recovered/Not Resolved]
  - Depression [Not Recovered/Not Resolved]

NARRATIVE: CASE EVENT DATE: 201303
